FAERS Safety Report 14214881 (Version 1)
Quarter: 2017Q4

REPORT INFORMATION
  Report Type: Spontaneous
  Country: US (occurrence: US)
  Receive Date: 20171122
  Receipt Date: 20171122
  Transmission Date: 20180321
  Serious: No
  Sender: FDA-Public Use
  Company Number: US-ROCHE-1905480

PATIENT
  Age: 69 Year
  Sex: Female

DRUGS (2)
  1. PERJETA [Suspect]
     Active Substance: PERTUZUMAB
     Indication: BREAST CANCER
     Dosage: COMPLETED 2 ROUNDS ;ONGOING: NO
     Route: 065
  2. HERCEPTIN [Suspect]
     Active Substance: TRASTUZUMAB
     Indication: BREAST CANCER
     Dosage: 3 ROUNDS ;ONGOING: NO
     Route: 065

REACTIONS (4)
  - Chills [Unknown]
  - Hypoxia [Unknown]
  - Back pain [Unknown]
  - Hypertension [Unknown]
